FAERS Safety Report 7635179-1 (Version None)
Quarter: 2011Q3

REPORT INFORMATION
  Report Type: 
  Country: None (occurrence: None)
  Receive Date: 20110718
  Receipt Date: 20110707
  Transmission Date: 20111222
  Serious: Yes (Other)
  Sender: FDA-Public Use
  Company Number: 2011SP031627

PATIENT
  Age: 66 Year

DRUGS (1)
  1. POSACONAZOLE [Suspect]
     Indication: ASPERGILLOSIS
     Dosage: 200 MG; BID;

REACTIONS (3)
  - DEMYELINATING POLYNEUROPATHY [None]
  - AXONAL NEUROPATHY [None]
  - DRUG LEVEL ABOVE THERAPEUTIC [None]
